FAERS Safety Report 23998370 (Version 3)
Quarter: 2025Q1

REPORT INFORMATION
  Report Type: Other
  Country: CA (occurrence: CA)
  Receive Date: 20240621
  Receipt Date: 20250130
  Transmission Date: 20250409
  Serious: Yes (Hospitalization, Other)
  Sender: TOLMAR
  Company Number: CA-TOLMAR, INC.-24CA049635

PATIENT
  Age: 74 Year
  Sex: Male

DRUGS (11)
  1. ELIGARD [Suspect]
     Active Substance: LEUPROLIDE ACETATE
     Indication: Prostate cancer
     Dosage: 30 MILLIGRAM, Q 4 MONTH
     Route: 058
     Dates: start: 20240226
  2. ELIGARD [Suspect]
     Active Substance: LEUPROLIDE ACETATE
     Dosage: 30 MILLIGRAM, Q 4 MONTH
     Route: 058
     Dates: start: 20240613
  3. ELIGARD [Suspect]
     Active Substance: LEUPROLIDE ACETATE
     Dosage: 30 MILLIGRAM, Q 4 MONTH
     Route: 058
     Dates: start: 20241003
  4. ELIGARD [Suspect]
     Active Substance: LEUPROLIDE ACETATE
     Dosage: 30 MILLIGRAM, Q 4 MONTH
     Route: 058
     Dates: start: 20250122
  5. ELIGARD [Suspect]
     Active Substance: LEUPROLIDE ACETATE
     Indication: Prostate cancer
  6. UNSPECIFIED INGREDIENT [Suspect]
     Active Substance: UNSPECIFIED INGREDIENT
     Indication: Product used for unknown indication
     Route: 042
     Dates: start: 20240327
  7. RADIATION THERAPY [Suspect]
     Active Substance: RADIATION THERAPY
     Indication: Product used for unknown indication
     Dates: start: 20240318, end: 20240322
  8. DAROLUTAMIDE [Suspect]
     Active Substance: DAROLUTAMIDE
     Indication: Product used for unknown indication
  9. CALCIUM [Concomitant]
     Active Substance: CALCIUM
     Indication: Supplementation therapy
  10. VITAMIN D NOS [Concomitant]
     Active Substance: CHOLECALCIFEROL\ERGOCALCIFEROL
     Indication: Supplementation therapy
  11. BICALUTAMIDE [Concomitant]
     Active Substance: BICALUTAMIDE
     Indication: Product used for unknown indication
     Dosage: 50 MILLIGRAM, QD
     Route: 048

REACTIONS (9)
  - Malaise [Not Recovered/Not Resolved]
  - Femur fracture [Unknown]
  - Weight decreased [Recovering/Resolving]
  - Decreased appetite [Not Recovered/Not Resolved]
  - Injection site pain [Recovered/Resolved]
  - Dysgeusia [Recovering/Resolving]
  - Fatigue [Unknown]
  - Nausea [Unknown]
  - Hot flush [Not Recovered/Not Resolved]

NARRATIVE: CASE EVENT DATE: 20240226
